FAERS Safety Report 6260907-X (Version None)
Quarter: 2009Q3

REPORT INFORMATION
  Report Type: 
  Country: None (occurrence: None)
  Receive Date: 20090709
  Receipt Date: 20070921
  Transmission Date: 20100115
  Serious: Yes (Other)
  Sender: FDA-Public Use
  Company Number: US-ASTRAZENECA-2006UW21047

PATIENT
  Age: 21 Year
  Sex: Female
  Weight: 78 kg

DRUGS (25)
  1. SEROQUEL [Suspect]
     Indication: INSOMNIA
     Dosage: 25-200MG
     Route: 048
     Dates: start: 20041013
  2. SEROQUEL [Suspect]
     Indication: DEPRESSION
     Dosage: 25-200MG
     Route: 048
     Dates: start: 20041013
  3. SEROQUEL [Suspect]
     Indication: AFFECTIVE DISORDER
     Dosage: 25-200MG
     Route: 048
     Dates: start: 20041013
  4. SEROQUEL [Suspect]
     Route: 048
  5. SEROQUEL [Suspect]
     Route: 048
  6. SEROQUEL [Suspect]
     Route: 048
  7. SEROQUEL [Suspect]
     Dosage: 25-50 MG
     Route: 048
     Dates: start: 20050714, end: 20070313
  8. SEROQUEL [Suspect]
     Dosage: 25-50 MG
     Route: 048
     Dates: start: 20050714, end: 20070313
  9. SEROQUEL [Suspect]
     Dosage: 25-50 MG
     Route: 048
     Dates: start: 20050714, end: 20070313
  10. CLOZARIL [Concomitant]
  11. PROZAC [Concomitant]
  12. SELEYA [Concomitant]
  13. PAXIL [Concomitant]
  14. WELLBUTRIN [Concomitant]
  15. RANITIDINE [Concomitant]
  16. ADVAIR HFA [Concomitant]
     Dosage: 250MCG-50MCG
  17. ALBUTEROL [Concomitant]
  18. GLUCOPHAGE [Concomitant]
     Indication: TYPE 2 DIABETES MELLITUS
  19. TAMBOCOR [Concomitant]
  20. INSULIN [Concomitant]
     Dosage: 5 UNITS -18 UNITS
  21. CONCERTA [Concomitant]
     Indication: ATTENTION DEFICIT/HYPERACTIVITY DISORDER
     Dosage: 36 MG - 54 MG
  22. STRATTERA [Concomitant]
     Indication: ATTENTION DEFICIT/HYPERACTIVITY DISORDER
     Dosage: 25MG - 40MG
  23. LEXAPRO [Concomitant]
     Indication: OBSESSIVE-COMPULSIVE DISORDER
     Dosage: 10MG - 20MG
  24. LEXAPRO [Concomitant]
     Indication: DEPRESSION
     Dosage: 10MG - 20MG
  25. NAPROSYN [Concomitant]
     Dosage: 500MG - 550MG

REACTIONS (3)
  - CARDIAC DISORDER [None]
  - DIABETES MELLITUS [None]
  - TACHYCARDIA [None]
